FAERS Safety Report 6711978-5 (Version None)
Quarter: 2010Q2

REPORT INFORMATION
  Report Type: 
  Country: None (occurrence: None)
  Receive Date: 20100505
  Receipt Date: 20100426
  Transmission Date: 20101027
  Serious: Yes (Death)
  Sender: FDA-Public Use
  Company Number: JP-PFIZER INC-2010014059

PATIENT
  Age: 79 Year
  Sex: Male
  Weight: 60 kg

DRUGS (5)
  1. SUNITINIB MALATE [Suspect]
     Indication: RENAL CELL CARCINOMA
     Dosage: 37.5 MG, 1X/DAY
     Route: 048
     Dates: start: 20100111, end: 20100126
  2. GASMOTIN [Concomitant]
     Route: 048
     Dates: end: 20100126
  3. MAGNESIUM OXIDE [Concomitant]
     Route: 048
     Dates: end: 20100126
  4. SENNARIDE [Concomitant]
     Route: 048
     Dates: end: 20100126
  5. DECADRON [Concomitant]
     Route: 048
     Dates: end: 20100126

REACTIONS (4)
  - DISEASE PROGRESSION [None]
  - DISSEMINATED INTRAVASCULAR COAGULATION [None]
  - MULTI-ORGAN FAILURE [None]
  - RENAL CELL CARCINOMA [None]
